FAERS Safety Report 21363974 (Version 1)
Quarter: 2022Q3

REPORT INFORMATION
  Report Type: Spontaneous
  Country: US (occurrence: None)
  Receive Date: 20220921
  Receipt Date: 20220921
  Transmission Date: 20221027
  Serious: Yes (Hospitalization, Disabling, Other)
  Sender: FDA-Public Use
  Company Number: None

PATIENT
  Age: 35 Year
  Sex: Female
  Weight: 84.15 kg

DRUGS (1)
  1. WEGOVY [Suspect]
     Active Substance: SEMAGLUTIDE
     Indication: Weight decreased
     Dosage: OTHER QUANTITY : 1 INJECTION(S);?OTHER FREQUENCY : ONCE PER WEEK;?
     Route: 058
     Dates: start: 20220316, end: 20220317

REACTIONS (30)
  - Prescribed overdose [None]
  - Nausea [None]
  - Vomiting [None]
  - Dehydration [None]
  - Headache [None]
  - Pain [None]
  - Emotional distress [None]
  - Haematuria [None]
  - Urinary retention [None]
  - Cystitis interstitial [None]
  - Proteinuria [None]
  - Pollakiuria [None]
  - Abdominal pain [None]
  - Anxiety [None]
  - Panic attack [None]
  - Depression [None]
  - Incorrect dose administered [None]
  - Anxiety [None]
  - Device malfunction [None]
  - Seizure [None]
  - Flank pain [None]
  - Vascular access complication [None]
  - Urine ketone body present [None]
  - Blood urine present [None]
  - Protein urine present [None]
  - Urobilinogen urine increased [None]
  - Specific gravity urine increased [None]
  - Rib fracture [None]
  - Renal injury [None]
  - Post-traumatic stress disorder [None]

NARRATIVE: CASE EVENT DATE: 20220316
